FAERS Safety Report 9759449 (Version 1)
Quarter: 2013Q4

REPORT INFORMATION
  Report Type: Spontaneous
  Country: US (occurrence: None)
  Receive Date: 20131216
  Receipt Date: 20131216
  Transmission Date: 20140711
  Serious: Yes (Hospitalization, Other)
  Sender: FDA-Public Use
  Company Number: 163-21880-12110097(0)

PATIENT
  Age: 52 Year
  Sex: Male
  Weight: 105 kg

DRUGS (1)
  1. REVLIMID(LENALIDOMIDE)(CAPSULES) [Suspect]
     Indication: PLASMA CELL MYELOMA
     Dosage: 25 MG, 21 IN 28 D, PO?

REACTIONS (2)
  - Febrile neutropenia [None]
  - Plasma cell myeloma [None]
